FAERS Safety Report 4805701-9 (Version None)
Quarter: 2005Q4

REPORT INFORMATION
  Report Type: 
  Country: None (occurrence: None)
  Receive Date: 20051018
  Receipt Date: 20051003
  Transmission Date: 20060501
  Serious: Yes (Other)
  Sender: FDA-Public Use
  Company Number: 12668

PATIENT
  Age: 79 Year
  Sex: Male

DRUGS (8)
  1. METHOTREXATE [Suspect]
     Dosage: 0.8 ML WEEKLY ST
     Dates: start: 20030402, end: 20030907
  2. ENBREL [Suspect]
     Indication: RHEUMATOID ARTHRITIS
     Dosage: 25 MG 2/WK ST
     Dates: start: 20040114
  3. LORAZEPAM [Concomitant]
  4. FLOMAX [Concomitant]
  5. DIOVAN [Concomitant]
  6. MELOXICAM [Concomitant]
  7. IBUPROFEN [Concomitant]
  8. NAPROXEN [Concomitant]

REACTIONS (1)
  - PROSTATE CANCER [None]
